FAERS Safety Report 6825854-0 (Version None)
Quarter: 2010Q3

REPORT INFORMATION
  Report Type: 
  Country: None (occurrence: None)
  Receive Date: 20100707
  Receipt Date: 20100707
  Transmission Date: 20110219
  Serious: Yes (Life-Threatening, Disabling, Other)
  Sender: FDA-Public Use
  Company Number: None

PATIENT
  Age: 24 Year
  Sex: Male
  Weight: 103.4201 kg

DRUGS (3)
  1. ABILIFY [Suspect]
     Indication: BIPOLAR DISORDER
     Dosage: 5MG ONCE DAY NIGHT ; 10 MG ONE DAY NIGHT
     Dates: start: 20100414
  2. ABILIFY [Suspect]
     Indication: BIPOLAR DISORDER
     Dosage: 5MG ONCE DAY NIGHT ; 10 MG ONE DAY NIGHT
     Dates: start: 20100502
  3. ABILIFY [Suspect]
     Indication: BIPOLAR DISORDER
     Dosage: 5MG ONCE DAY NIGHT ; 10 MG ONE DAY NIGHT
     Dates: start: 20100603

REACTIONS (5)
  - ABDOMINAL PAIN UPPER [None]
  - FATIGUE [None]
  - HEADACHE [None]
  - LIVER DISORDER [None]
  - SOMNOLENCE [None]
